FAERS Safety Report 7940542-5 (Version None)
Quarter: 2011Q4

REPORT INFORMATION
  Report Type: 
  Country: None (occurrence: None)
  Receive Date: 20111114
  Receipt Date: 20101130
  Transmission Date: 20120403
  Serious: Yes (Hospitalization)
  Sender: FDA-Public Use
  Company Number: 2010S1001470

PATIENT
  Age: 46 Year
  Sex: Male
  Weight: 70.84 kg

DRUGS (23)
  1. METOPROLOL TARTRATE [Concomitant]
  2. LAXATIVES [Concomitant]
  3. METHADONE HYDROCHLORIDE [Concomitant]
  4. SODIUM CHLORIDE [Concomitant]
  5. NEURONTIN [Concomitant]
  6. ZYVOX [Concomitant]
  7. ELOCON [Concomitant]
  8. PANTOPRAZOLE [Concomitant]
  9. ZOCOR [Concomitant]
  10. ACCUPRIL [Concomitant]
  11. COLACE [Concomitant]
  12. ATROVENT [Concomitant]
  13. AVELOX [Concomitant]
  14. VANCOMYCIN [Concomitant]
  15. MILK OF MAGNESIA TAB [Concomitant]
  16. ALBUTEROL [Concomitant]
  17. MUPIROCIN [Concomitant]
  18. NICODERM [Concomitant]
  19. DESYREL [Concomitant]
  20. METAXALONE [Concomitant]
  21. MORPHINE [Concomitant]
  22. NARCAN [Concomitant]
  23. CUBICIN [Suspect]
     Indication: STAPHYLOCOCCAL INFECTION
     Dosage: 8 MG/KG;X1;IV
     Route: 042
     Dates: start: 20101013, end: 20101013

REACTIONS (1)
  - RENAL FAILURE ACUTE [None]
